FAERS Safety Report 14602077 (Version 1)
Quarter: 2018Q1

REPORT INFORMATION
  Report Type: Spontaneous
  Country: US (occurrence: US)
  Receive Date: 20180306
  Receipt Date: 20180306
  Transmission Date: 20180509
  Serious: Yes (Other)
  Sender: FDA-Public Use
  Company Number: US-ROCHE-2080286

PATIENT
  Age: 58 Year
  Sex: Female
  Weight: 57.14 kg

DRUGS (8)
  1. DEXAMETHASONE. [Concomitant]
     Active Substance: DEXAMETHASONE
     Route: 065
  2. LOSARTAN/HCTZ [Concomitant]
     Active Substance: HYDROCHLOROTHIAZIDE\LOSARTAN
     Route: 065
  3. NEULASTA [Suspect]
     Active Substance: PEGFILGRASTIM
     Indication: PRODUCT USED FOR UNKNOWN INDICATION
     Route: 058
     Dates: start: 20180118
  4. HERCEPTIN [Suspect]
     Active Substance: TRASTUZUMAB
     Indication: BREAST CANCER METASTATIC
     Route: 065
  5. XGEVA [Suspect]
     Active Substance: DENOSUMAB
     Indication: METASTASES TO BONE
     Dosage: 70 MG/ML, UNK (120MG/1.7ML)
     Route: 058
     Dates: start: 2018
  6. PERJETA [Suspect]
     Active Substance: PERTUZUMAB
     Indication: BREAST CANCER METASTATIC
     Route: 065
  7. TAXOTERE [Suspect]
     Active Substance: DOCETAXEL
     Indication: BREAST CANCER METASTATIC
     Route: 065
  8. METFORMIN HYDROCHLORIDE. [Concomitant]
     Active Substance: METFORMIN HYDROCHLORIDE
     Dosage: EXTENDED RELEASE
     Route: 065

REACTIONS (12)
  - Breast cancer metastatic [Unknown]
  - Wrong technique in product usage process [Unknown]
  - Hypercalcaemia [Recovering/Resolving]
  - Back pain [Recovered/Resolved]
  - Diarrhoea [Unknown]
  - Decreased appetite [Recovering/Resolving]
  - Microcytic anaemia [Unknown]
  - Accidental exposure to product [Unknown]
  - Pallor [Not Recovered/Not Resolved]
  - Fatigue [Unknown]
  - Abnormal loss of weight [Unknown]
  - Acute kidney injury [Recovering/Resolving]
